FAERS Safety Report 10932954 (Version 1)
Quarter: 2015Q1

REPORT INFORMATION
  Report Type: Spontaneous
  Country: US (occurrence: US)
  Receive Date: 20150320
  Receipt Date: 20150320
  Transmission Date: 20150721
  Serious: Yes (Life-Threatening, Hospitalization, Other)
  Sender: FDA-Public Use
  Company Number: US-TAKEDA-2015TJP004697

PATIENT
  Age: 59 Year
  Sex: Male

DRUGS (1)
  1. VORTIOXETINE [Suspect]
     Active Substance: VORTIOXETINE
     Indication: PRODUCT USED FOR UNKNOWN INDICATION
     Dosage: 10 MG, UNK
     Route: 065
     Dates: start: 201401

REACTIONS (5)
  - Night sweats [Unknown]
  - Headache [Unknown]
  - Tobacco user [Unknown]
  - Suicide attempt [Recovered/Resolved]
  - Paranoia [Unknown]

NARRATIVE: CASE EVENT DATE: 20140303
